FAERS Safety Report 5030608-4 (Version None)
Quarter: 2006Q2

REPORT INFORMATION
  Report Type: 
  Country: None (occurrence: None)
  Receive Date: 20060620
  Receipt Date: 20060612
  Transmission Date: 20061013
  Serious: Yes (Hospitalization)
  Sender: FDA-Public Use
  Company Number: JP-MERCK-0606USA02951

PATIENT
  Age: 64 Year
  Sex: Female

DRUGS (5)
  1. SINGULAIR [Suspect]
     Indication: ASTHMA
     Route: 048
     Dates: start: 20051227, end: 20060609
  2. THEO-DUR [Concomitant]
     Indication: ASTHMA
     Route: 048
     Dates: start: 20050314, end: 20060609
  3. AROFUTO [Concomitant]
     Route: 048
     Dates: start: 20050314
  4. MERISLON [Concomitant]
     Indication: DIZZINESS
     Route: 048
     Dates: start: 20050314
  5. DEPAS [Concomitant]
     Route: 048
     Dates: start: 20050314

REACTIONS (5)
  - ALANINE AMINOTRANSFERASE ABNORMAL [None]
  - ASPARTATE AMINOTRANSFERASE ABNORMAL [None]
  - ASTHENIA [None]
  - BLOOD LACTATE DEHYDROGENASE ABNORMAL [None]
  - FATIGUE [None]
